FAERS Safety Report 5782926-X (Version None)
Quarter: 2008Q2

REPORT INFORMATION
  Report Type: 
  Country: None (occurrence: None)
  Receive Date: 20080624
  Receipt Date: 20080619
  Transmission Date: 20081010
  Serious: Yes (Death, Hospitalization)
  Sender: FDA-Public Use
  Company Number: JP-BRISTOL-MYERS SQUIBB COMPANY-14021240

PATIENT
  Age: 55 Year
  Sex: Female

DRUGS (3)
  1. ENDOXAN [Suspect]
     Indication: BREAST CANCER STAGE IV
     Dates: start: 20040423, end: 20040514
  2. FLUOROURACIL [Suspect]
     Indication: BREAST CANCER STAGE IV
     Dates: start: 20040423, end: 20040514
  3. EPIRUBICIN HCL [Suspect]
     Indication: BREAST CANCER STAGE IV
     Dates: start: 20040423, end: 20040514

REACTIONS (3)
  - DISSEMINATED INTRAVASCULAR COAGULATION [None]
  - MULTI-ORGAN FAILURE [None]
  - TUMOUR LYSIS SYNDROME [None]
